FAERS Safety Report 10065627 (Version 1)
Quarter: 2014Q2

REPORT INFORMATION
  Report Type: Spontaneous
  Country: US (occurrence: None)
  Receive Date: 20140401
  Receipt Date: 20140401
  Transmission Date: 20141212
  Serious: Yes (Other)
  Sender: FDA-Public Use
  Company Number: PHEH2013US018709

PATIENT
  Sex: Male

DRUGS (15)
  1. EXELON PATCH (RIVASTIGMINE) TRANS-THERAPEUTIC-SYSTEM [Suspect]
     Route: 062
     Dates: start: 20130826
  2. SONATA (ZALEPLON) [Concomitant]
     Route: 062
  3. CITALOPRAM [Concomitant]
  4. EFFEXOR-SLOW RELEASE (VENLAFAXINE HYDROCHLORIDE) [Concomitant]
  5. HYDROCODONE BITARTRATE AND ACETAMINOPHEN (HYDROCONDONE BITARTRATE, PARACETAMOL) [Concomitant]
  6. TEMAZEPAM [Concomitant]
  7. METAMUCIL (PLANTAGO OVATA) [Concomitant]
  8. STOOL SOFTENER (DOCUSATE SODIUM) [Concomitant]
  9. OMEGA 3 FISH OIL(DOCOSAHEXAENOIC ACID, EICOSAPENTAENIC ACID) [Concomitant]
  10. BENADRYL (CAMPHOR,  DIPHENHYDRAMINE HYDROCHLORIDE, ZINC OXIDE) [Concomitant]
  11. ENZYMES NOS (ENZYMES NOS) [Concomitant]
  12. KRILL OIL (FISH OIL) [Concomitant]
  13. PROTEINS NOS (PROTEINS NOS) [Concomitant]
  14. MARIJUANA (CANNABIS SATIVA) (CANNABIS SATIVA) [Concomitant]
  15. ARICEPT (DONEPEZIL HYDROCHLORIDE) [Concomitant]

REACTIONS (8)
  - Depression [None]
  - Nightmare [None]
  - Pain in extremity [None]
  - Foot fracture [None]
  - Balance disorder [None]
  - Anxiety [None]
  - Insomnia [None]
  - Headache [None]
